FAERS Safety Report 6572418-2 (Version None)
Quarter: 2010Q1

REPORT INFORMATION
  Report Type: 
  Country: None (occurrence: None)
  Receive Date: 20100205
  Receipt Date: 20100126
  Transmission Date: 20100710
  Serious: Yes (Hospitalization)
  Sender: FDA-Public Use
  Company Number: TH-ELI_LILLY_AND_COMPANY-TH200912002872

PATIENT
  Age: 38 Year
  Sex: Male
  Weight: 60 kg

DRUGS (5)
  1. ALIMTA [Suspect]
     Indication: MESOTHELIOMA MALIGNANT
     Dosage: 800 MG, OTHER (21 DAYS)
     Route: 042
     Dates: start: 20090101
  2. CARBOPLATIN [Concomitant]
     Dosage: UNK, UNKNOWN
     Route: 065
  3. FOLIC ACID [Concomitant]
     Dosage: 500 MG, UNK
     Route: 048
  4. VITAMIN B-12 [Concomitant]
     Dosage: 1000 UG, UNK
     Route: 030
  5. DEXAMETHASONE [Concomitant]
     Dosage: 4 MG, 2/D (ON THE DAY PRIOR, OF ADMIN AND AFTER PEMETREXED)
     Route: 048

REACTIONS (1)
  - EMBOLISM VENOUS [None]
